FAERS Safety Report 9281690 (Version 1)
Quarter: 2013Q2

REPORT INFORMATION
  Report Type: Spontaneous
  Country: US (occurrence: US)
  Receive Date: 20130509
  Receipt Date: 20130509
  Transmission Date: 20140414
  Serious: No
  Sender: FDA-Public Use
  Company Number: US-009507513-1305USA003150

PATIENT
  Age: 22 Year
  Sex: Female
  Weight: 113.38 kg

DRUGS (2)
  1. IMPLANON [Suspect]
     Indication: CONTRACEPTION
     Dosage: ONE 68 MG ROD TO 3 YEARS
     Route: 059
     Dates: start: 20110428
  2. TYLENOL [Concomitant]
     Indication: HEADACHE

REACTIONS (3)
  - Headache [Unknown]
  - Medical device complication [Not Recovered/Not Resolved]
  - Device difficult to use [Recovered/Resolved]
